FAERS Safety Report 15228759 (Version 2)
Quarter: 2018Q3

REPORT INFORMATION
  Report Type: Report from Study
  Country: US (occurrence: US)
  Receive Date: 20180801
  Receipt Date: 20180906
  Transmission Date: 20181010
  Serious: Yes (Hospitalization, Other)
  Sender: FDA-Public Use
  Company Number: US-MALLINCKRODT-T201802326

PATIENT
  Sex: Male

DRUGS (3)
  1. REPOSITORY CORTICOTROPIN INJECTION [Suspect]
     Active Substance: CORTICOTROPIN
     Dosage: 40 UNITS/0.5 ML, 2 TIMES PER WEEK, MONDAY AND FRIDAY
     Route: 058
     Dates: start: 2018
  2. COUMADIN [Suspect]
     Active Substance: WARFARIN SODIUM
     Indication: PRODUCT USED FOR UNKNOWN INDICATION
     Dosage: DECREASED TO HALF
     Route: 065
  3. REPOSITORY CORTICOTROPIN INJECTION [Suspect]
     Active Substance: CORTICOTROPIN
     Indication: IGA NEPHROPATHY
     Dosage: 40 UNITS/0.5 ML, 2 TIMES PER WEEK, MONDAY AND FRIDAY
     Route: 058
     Dates: start: 20180525, end: 2018

REACTIONS (14)
  - Blood urine present [Not Recovered/Not Resolved]
  - Asthenia [Not Recovered/Not Resolved]
  - Drug interaction [Not Recovered/Not Resolved]
  - Headache [Not Recovered/Not Resolved]
  - Fatigue [Not Recovered/Not Resolved]
  - Insomnia [Unknown]
  - International normalised ratio increased [Recovering/Resolving]
  - Micturition urgency [Unknown]
  - Urine iron increased [Unknown]
  - Appetite disorder [Unknown]
  - Pyrexia [Unknown]
  - Blood pressure increased [Recovering/Resolving]
  - Peripheral swelling [Recovering/Resolving]
  - Nasopharyngitis [Unknown]

NARRATIVE: CASE EVENT DATE: 2018
